FAERS Safety Report 4652234-9 (Version None)
Quarter: 2005Q2

REPORT INFORMATION
  Report Type: 
  Country: None (occurrence: None)
  Receive Date: 20050502
  Receipt Date: 20050418
  Transmission Date: 20051028
  Serious: Yes (Hospitalization)
  Sender: FDA-Public Use
  Company Number: 2005061855

PATIENT
  Age: 41 Year
  Sex: Female

DRUGS (10)
  1. CLINDAMYCIN HYDROCHLORIDE [Suspect]
     Indication: ILL-DEFINED DISORDER
     Dosage: ORAL
     Route: 048
     Dates: end: 20050314
  2. PYRIMETHAMINE TAB [Suspect]
     Indication: ILL-DEFINED DISORDER
     Dosage: ORAL
     Route: 048
     Dates: end: 20050314
  3. LAMIVUDINE AND ZIDOVUDINE [Suspect]
     Indication: ILL-DEFINED DISORDER
     Dosage: 2 DOSES FORM (BID), ORAL
     Route: 048
     Dates: end: 20050314
  4. KALETRA [Suspect]
     Indication: ILL-DEFINED DISORDER
     Dosage: 6 DOSES FORM (BID), ORAL
     Route: 048
     Dates: end: 20050314
  5. AZITHROMYCIN [Concomitant]
  6. LEUCOVORIN CALCIUM [Concomitant]
  7. PENTAMIDINE ISETHIONATE [Concomitant]
  8. CEFTRIAXONE [Concomitant]
  9. OFLOXICIN (OFLOXACIN) [Concomitant]
  10. NSAID'S (NSAID'S) [Concomitant]

REACTIONS (2)
  - NEUTROPENIA [None]
  - PANCYTOPENIA [None]
